FAERS Safety Report 8317349-2 (Version None)
Quarter: 2012Q2

REPORT INFORMATION
  Report Type: 
  Country: None (occurrence: None)
  Receive Date: 20120427
  Receipt Date: 20120417
  Transmission Date: 20120825
  Serious: Yes (Hospitalization)
  Sender: FDA-Public Use
  Company Number: CA-JNJFOC-20120307845

PATIENT
  Sex: Female
  Weight: 89.6 kg

DRUGS (6)
  1. IMURAN [Concomitant]
     Route: 048
  2. METOPROLOL TARTRATE [Concomitant]
     Route: 065
  3. REMICADE [Suspect]
     Indication: CROHN'S DISEASE
     Route: 042
     Dates: start: 20120302
  4. CLONIDINE [Concomitant]
     Route: 065
  5. VITAMIN B-12 [Concomitant]
     Route: 065
  6. NORVASC [Concomitant]
     Route: 065

REACTIONS (6)
  - PAIN IN EXTREMITY [None]
  - VOMITING [None]
  - PYREXIA [None]
  - NAUSEA [None]
  - MALAISE [None]
  - DIARRHOEA [None]
